FAERS Safety Report 8322883-5 (Version None)
Quarter: 2012Q2

REPORT INFORMATION
  Report Type: 
  Country: None (occurrence: None)
  Receive Date: 20120430
  Receipt Date: 20110817
  Transmission Date: 20120825
  Serious: Yes (Other)
  Sender: FDA-Public Use
  Company Number: US-TEVA-2011004347

PATIENT
  Sex: Female
  Weight: 68.1 kg

DRUGS (8)
  1. PROVIGIL [Suspect]
     Indication: COMPLEX REGIONAL PAIN SYNDROME
     Route: 048
     Dates: start: 20110814, end: 20110815
  2. MULTI-VITAMIN [Concomitant]
  3. FISH OIL [Concomitant]
  4. WELLBUTRIN [Concomitant]
     Dates: start: 20080101
  5. VITAMIN D [Concomitant]
  6. HYDROCODONE BITARTRATE AND ACETAMINOPHEN [Concomitant]
     Dates: start: 20050101
  7. ALPHA LIPOIC ACID [Concomitant]
  8. CALCIUM [Concomitant]

REACTIONS (5)
  - ASTHENIA [None]
  - NAUSEA [None]
  - HEADACHE [None]
  - DIZZINESS [None]
  - FATIGUE [None]
